FAERS Safety Report 8575830-5 (Version None)
Quarter: 2012Q2

REPORT INFORMATION
  Report Type: 
  Country: None (occurrence: None)
  Receive Date: 20120423
  Receipt Date: 20100126
  Transmission Date: 20120825
  Serious: Yes (Death, Life-Threatening, Disabling, Other)
  Sender: FDA-Public Use
  Company Number: PHEH2009US16688

PATIENT
  Age: 69 Year
  Sex: Male
  Weight: 76.2 kg

DRUGS (8)
  1. LORTAB [Concomitant]
  2. PROSCAR [Concomitant]
  3. SULFASALAZINE [Concomitant]
  4. CIPRO [Concomitant]
  5. EXJADE [Suspect]
     Indication: MYELOID METAPLASIA
     Dosage: 500 MG, BID, ORAL
     Route: 048
     Dates: start: 20080509, end: 20090930
  6. EXJADE [Suspect]
     Indication: IRON OVERLOAD
     Dosage: 500 MG, BID, ORAL
     Route: 048
     Dates: start: 20080509, end: 20090930
  7. METOPROLOL TARTRATE [Concomitant]
  8. PRILOSEC [Concomitant]

REACTIONS (14)
  - TERMINAL STATE [None]
  - THROMBOCYTOPENIA [None]
  - WHITE BLOOD CELL COUNT INCREASED [None]
  - PAIN [None]
  - CONJUNCTIVAL HAEMORRHAGE [None]
  - COUGH [None]
  - PYREXIA [None]
  - ACUTE MYELOID LEUKAEMIA [None]
  - CONCOMITANT DISEASE PROGRESSION [None]
  - ANAEMIA [None]
  - CHILLS [None]
  - ECCHYMOSIS [None]
  - FATIGUE [None]
  - DYSPNOEA [None]
